FAERS Safety Report 4727518-6 (Version None)
Quarter: 2005Q3

REPORT INFORMATION
  Report Type: 
  Country: None (occurrence: None)
  Receive Date: 20050727
  Receipt Date: 20050727
  Transmission Date: 20060218
  Serious: Yes (Other)
  Sender: FDA-Public Use
  Company Number: None

PATIENT
  Sex: Male
  Weight: 84.8226 kg

DRUGS (2)
  1. LOVASTATIN [Suspect]
     Indication: BLOOD CHOLESTEROL INCREASED
     Dosage: 1/DAY    ORAL
     Route: 048
     Dates: start: 20050518, end: 20050701
  2. LIPITOR [Suspect]
     Indication: BLOOD CHOLESTEROL INCREASED
     Dosage: 1/DAY    ORAL
     Route: 048
     Dates: start: 20010212, end: 20011001

REACTIONS (2)
  - FATIGUE [None]
  - MYALGIA [None]
